FAERS Safety Report 9467317 (Version 3)
Quarter: 2014Q2

REPORT INFORMATION
  Report Type: Report from Study
  Country: GB (occurrence: GB)
  Receive Date: 20130821
  Receipt Date: 20140411
  Transmission Date: 20141212
  Serious: Yes (Other)
  Sender: FDA-Public Use
  Company Number: GB-ROCHE-1263955

PATIENT
  Age: 73 Year
  Sex: Female

DRUGS (4)
  1. RANIBIZUMAB [Suspect]
     Indication: PRODUCT USED FOR UNKNOWN INDICATION
     Route: 050
     Dates: start: 20090920
  2. RANIBIZUMAB [Suspect]
     Route: 050
     Dates: start: 20120629
  3. PARACETAMOL [Concomitant]
     Route: 065
     Dates: start: 20130207
  4. PARACETAMOL [Concomitant]
     Route: 065
     Dates: start: 20130707

REACTIONS (4)
  - Transient ischaemic attack [Recovering/Resolving]
  - Obesity [Not Recovered/Not Resolved]
  - Blood cholesterol increased [Not Recovered/Not Resolved]
  - Hypertension [Not Recovered/Not Resolved]
